FAERS Safety Report 4558262-6 (Version None)
Quarter: 2005Q1

REPORT INFORMATION
  Report Type: 
  Country: None (occurrence: None)
  Receive Date: 20050121
  Receipt Date: 20050112
  Transmission Date: 20050727
  Serious: Yes (Other)
  Sender: FDA-Public Use
  Company Number: NO-BRISTOL-MYERS SQUIBB COMPANY-12826715

PATIENT
  Age: 26 Year
  Sex: Male

DRUGS (1)
  1. DAIVONEX [Suspect]
     Route: 061
     Dates: start: 19920101

REACTIONS (3)
  - BLOOD CHOLESTEROL INCREASED [None]
  - BLOOD TRIGLYCERIDES INCREASED [None]
  - HAEMOCHROMATOSIS [None]
